FAERS Safety Report 17604026 (Version 1)
Quarter: 2020Q1

REPORT INFORMATION
  Report Type: Spontaneous
  Country: US (occurrence: US)
  Receive Date: 20200331
  Receipt Date: 20200331
  Transmission Date: 20200409
  Serious: No
  Sender: FDA-Public Use
  Company Number: US-GLAXOSMITHKLINE-US2020AMR053826

PATIENT
  Sex: Female

DRUGS (1)
  1. ZEJULA [Suspect]
     Active Substance: NIRAPARIB
     Indication: OVARIAN CANCER
     Dosage: 300 MG, QD (EVERY EVENING)
     Dates: start: 20200123

REACTIONS (4)
  - Fall [Unknown]
  - Limb injury [Unknown]
  - Nausea [Unknown]
  - Condition aggravated [Unknown]
